FAERS Safety Report 4895197-3 (Version None)
Quarter: 2006Q1

REPORT INFORMATION
  Report Type: 
  Country: None (occurrence: None)
  Receive Date: 20060125
  Receipt Date: 20060118
  Transmission Date: 20060701
  Serious: Yes (Other)
  Sender: FDA-Public Use
  Company Number: GB-2006-000886

PATIENT
  Sex: Female

DRUGS (1)
  1. MIRENA [Suspect]
     Dosage: 20 UG/DAT, INTRA-UTERINE
     Route: 015

REACTIONS (2)
  - DEVICE FAILURE [None]
  - IUCD COMPLICATION [None]
